FAERS Safety Report 7241117-6 (Version None)
Quarter: 2011Q1

REPORT INFORMATION
  Report Type: 
  Country: None (occurrence: None)
  Receive Date: 20110120
  Receipt Date: 20110120
  Transmission Date: 20110831
  Serious: Yes (Other)
  Sender: FDA-Public Use
  Company Number: None

PATIENT
  Age: 72 Year
  Sex: Female
  Weight: 77.1115 kg

DRUGS (1)
  1. ARIMIDEX [Suspect]
     Indication: BREAST CANCER
     Dosage: ONCE A DAY
     Dates: start: 20050306, end: 20100306

REACTIONS (6)
  - MYALGIA [None]
  - DYSSTASIA [None]
  - PAIN IN EXTREMITY [None]
  - MUSCLE SPASMS [None]
  - FEELING ABNORMAL [None]
  - MUSCULOSKELETAL DISORDER [None]
